FAERS Safety Report 9113577 (Version 1)
Quarter: 2013Q1

REPORT INFORMATION
  Report Type: Spontaneous
  Country: US (occurrence: US)
  Receive Date: 20130201
  Receipt Date: 20130201
  Transmission Date: 20140127
  Serious: No
  Sender: FDA-Public Use
  Company Number: US-PFIZER INC-2013039124

PATIENT
  Age: 53 Year
  Sex: Female

DRUGS (2)
  1. ZOLOFT [Suspect]
     Dosage: UNK
  2. PAXIL [Suspect]
     Dosage: UNK

REACTIONS (2)
  - Weight decreased [Unknown]
  - Drug intolerance [Unknown]
